FAERS Safety Report 25395434 (Version 1)
Quarter: 2025Q2

REPORT INFORMATION
  Report Type: Spontaneous
  Country: US (occurrence: US)
  Receive Date: 20250604
  Receipt Date: 20250604
  Transmission Date: 20250716
  Serious: No
  Sender: PHARMACOSMOS A/S
  Company Number: US-NEBO-694611

PATIENT
  Age: 33 Year
  Sex: Female

DRUGS (1)
  1. MONOFERRIC [Suspect]
     Active Substance: FERRIC DERISOMALTOSE
     Indication: Product used for unknown indication
     Dates: start: 2024, end: 2024

REACTIONS (2)
  - Tachycardia [Unknown]
  - Hypersensitivity [Unknown]
